FAERS Safety Report 18174290 (Version 1)
Quarter: 2020Q3

REPORT INFORMATION
  Report Type: Spontaneous
  Country: US (occurrence: US)
  Receive Date: 20200820
  Receipt Date: 20200820
  Transmission Date: 20201103
  Serious: Yes (Life-Threatening, Hospitalization)
  Sender: FDA-Public Use
  Company Number: None

PATIENT
  Age: 67 Year
  Sex: Male
  Weight: 72 kg

DRUGS (1)
  1. CIPROFLOXACIN. [Suspect]
     Active Substance: CIPROFLOXACIN
     Indication: ANTIBIOTIC PROPHYLAXIS
     Dosage: ?          QUANTITY:1 CAPSULE(S);OTHER FREQUENCY:ONE TIME ONLY.;?
     Route: 048
     Dates: start: 20200730

REACTIONS (7)
  - Headache [None]
  - Oxygen saturation decreased [None]
  - Chills [None]
  - Pyrexia [None]
  - Feeling abnormal [None]
  - Feeling cold [None]
  - Diarrhoea [None]

NARRATIVE: CASE EVENT DATE: 20200731
